FAERS Safety Report 14765222 (Version 1)
Quarter: 2018Q2

REPORT INFORMATION
  Report Type: Spontaneous
  Country: US (occurrence: US)
  Receive Date: 20180416
  Receipt Date: 20180416
  Transmission Date: 20180711
  Serious: No
  Sender: FDA-Public Use
  Company Number: US-TEVA-2018-US-880067

PATIENT

DRUGS (1)
  1. PROAIR HFA [Suspect]
     Active Substance: ALBUTEROL SULFATE
     Indication: ASTHMA
     Route: 065

REACTIONS (6)
  - Nasal congestion [Unknown]
  - Cough [Unknown]
  - Balance disorder [Unknown]
  - Condition aggravated [Unknown]
  - Malaise [Unknown]
  - Dyspnoea [Unknown]
